FAERS Safety Report 7223850-5 (Version None)
Quarter: 2011Q1

REPORT INFORMATION
  Report Type: 
  Country: None (occurrence: None)
  Receive Date: 20110112
  Receipt Date: 20101227
  Transmission Date: 20110831
  Serious: No
  Sender: FDA-Public Use
  Company Number: US-ALLERGAN-1016760US

PATIENT
  Sex: Male

DRUGS (3)
  1. AZASITE [Suspect]
     Dosage: UNK
     Dates: start: 20100301
  2. RESTASIS [Suspect]
     Indication: DRY EYE
     Dosage: 1 GTT, BID
     Route: 047
     Dates: start: 20050101
  3. AZASITE [Suspect]
     Indication: BLEPHARITIS
     Dosage: UNK
     Route: 047
     Dates: start: 20101101

REACTIONS (2)
  - EYE IRRITATION [None]
  - EYE PAIN [None]
